FAERS Safety Report 6926000-5 (Version None)
Quarter: 2010Q3

REPORT INFORMATION
  Report Type: 
  Country: None (occurrence: None)
  Receive Date: 20100816
  Receipt Date: 20100129
  Transmission Date: 20110219
  Serious: Yes (Hospitalization)
  Sender: FDA-Public Use
  Company Number: US-BRISTOL-MYERS SQUIBB COMPANY-14886188

PATIENT
  Age: 61 Year
  Sex: Male
  Weight: 83 kg

DRUGS (3)
  1. CETUXIMAB [Suspect]
     Indication: HEAD AND NECK CANCER
     Dosage: RESTARTED ON 07-DEC-2009,14DEC09-475MG
     Route: 042
     Dates: start: 20091130
  2. CISPLATIN [Suspect]
     Indication: HEAD AND NECK CANCER
     Route: 042
     Dates: start: 20091130
  3. RADIATION THERAPY [Suspect]

REACTIONS (4)
  - BLOOD CREATININE INCREASED [None]
  - NEUTROPENIA [None]
  - PAIN [None]
  - PYREXIA [None]
